FAERS Safety Report 5175468-6 (Version None)
Quarter: 2006Q4

REPORT INFORMATION
  Report Type: 
  Country: None (occurrence: None)
  Receive Date: 20061215
  Receipt Date: 20061206
  Transmission Date: 20070319
  Serious: Yes (Hospitalization, Other)
  Sender: FDA-Public Use
  Company Number: DE-JNJFOC-20061105810

PATIENT
  Sex: Female

DRUGS (5)
  1. REMINYL [Suspect]
     Route: 065
  2. REMINYL [Suspect]
     Indication: DEMENTIA
     Route: 065
  3. ENALAPRIL MALEATE [Concomitant]
     Route: 048
  4. DOXEPIN HCL [Concomitant]
     Dosage: 10-10-25
     Route: 048
  5. ASPIRIN [Concomitant]
     Route: 048

REACTIONS (5)
  - ABNORMAL BEHAVIOUR [None]
  - ANXIETY [None]
  - DELIRIUM [None]
  - DEPRESSED LEVEL OF CONSCIOUSNESS [None]
  - DRUG ADMINISTRATION ERROR [None]
